FAERS Safety Report 5257693-9 (Version None)
Quarter: 2007Q1

REPORT INFORMATION
  Report Type: 
  Country: None (occurrence: None)
  Receive Date: 20070307
  Receipt Date: 20070228
  Transmission Date: 20070707
  Serious: Yes (Hospitalization)
  Sender: FDA-Public Use
  Company Number: 2006UW04831

PATIENT
  Age: 679 Month
  Sex: Female
  Weight: 83.2 kg

DRUGS (1)
  1. SEROQUEL [Suspect]
     Indication: BIPOLAR DISORDER
     Dosage: 200-300MG
     Route: 048
     Dates: start: 20030101, end: 20040101

REACTIONS (5)
  - BLINDNESS [None]
  - DIABETES MELLITUS [None]
  - DIABETES MELLITUS NON-INSULIN-DEPENDENT [None]
  - DIABETIC COMA [None]
  - DIABETIC KETOACIDOSIS [None]
